FAERS Safety Report 18777959 (Version 1)
Quarter: 2021Q1

REPORT INFORMATION
  Report Type: Report from Study
  Country: US (occurrence: US)
  Receive Date: 20210123
  Receipt Date: 20210123
  Transmission Date: 20210419
  Serious: Yes (Other)
  Sender: FDA-Public Use
  Company Number: NVSC2021US010261

PATIENT
  Sex: Male

DRUGS (2)
  1. ENTRESTO [Suspect]
     Active Substance: SACUBITRIL\VALSARTAN
     Indication: PRODUCT USED FOR UNKNOWN INDICATION
     Dosage: 200 (97/103) MG, BID
     Route: 048
  2. ENTRESTO [Suspect]
     Active Substance: SACUBITRIL\VALSARTAN
     Dosage: 100 (49/51) MG, BID
     Route: 048

REACTIONS (6)
  - Swollen tongue [Unknown]
  - Peripheral swelling [Unknown]
  - Swelling face [Unknown]
  - Ear swelling [Unknown]
  - Feeling cold [Unknown]
  - Blindness [Unknown]
